FAERS Safety Report 5022469-4 (Version None)
Quarter: 2006Q2

REPORT INFORMATION
  Report Type: 
  Country: None (occurrence: None)
  Receive Date: 20060502
  Receipt Date: 20050829
  Transmission Date: 20061013
  Serious: Yes (Other)
  Sender: FDA-Public Use
  Company Number: PHEH2005US08788

PATIENT
  Age: 50 Year
  Sex: Male
  Weight: 95.2 kg

DRUGS (1)
  1. LOTREL [Suspect]
     Indication: HYPERTENSION
     Dosage: 10/20MG, QD, ORAL
     Route: 048
     Dates: start: 20040101

REACTIONS (3)
  - BLOOD PRESSURE INCREASED [None]
  - CHEST PAIN [None]
  - TREATMENT NONCOMPLIANCE [None]
